FAERS Safety Report 20816708 (Version 6)
Quarter: 2024Q2

REPORT INFORMATION
  Report Type: Other
  Country: DE (occurrence: None)
  Receive Date: 20220512
  Receipt Date: 20240412
  Transmission Date: 20240716
  Serious: No
  Sender: FDA-Public Use
  Company Number: DE-ROCHE-2771195

PATIENT
  Age: 37 Year
  Sex: Male

DRUGS (6)
  1. OCREVUS [Suspect]
     Active Substance: OCRELIZUMAB
     Indication: Relapsing-remitting multiple sclerosis
     Route: 042
     Dates: start: 20190109
  2. OCREVUS [Suspect]
     Active Substance: OCRELIZUMAB
     Dosage: SUBSEQUENT DOSE 600 MG ONCE IN 183 DAYS.
     Route: 042
     Dates: start: 20210127
  3. OCREVUS [Suspect]
     Active Substance: OCRELIZUMAB
     Route: 042
     Dates: start: 20220727
  4. OCREVUS [Suspect]
     Active Substance: OCRELIZUMAB
     Dosage: DATE OF THE 8TH MAINTENANCE DOSE, THEN SUBSEQUENT DOSE 600 MG ONCE IN 189 DAYS
     Route: 042
     Dates: start: 20230124
  5. ASPIRIN [Concomitant]
     Active Substance: ASPIRIN
     Dosage: AS NEEDED
  6. CHOLECALCIFEROL [Concomitant]
     Active Substance: CHOLECALCIFEROL

REACTIONS (9)
  - Blood pressure increased [Recovered/Resolved]
  - Heart rate increased [Recovered/Resolved]
  - COVID-19 [Recovered/Resolved]
  - Fatigue [Recovering/Resolving]
  - Nocturia [Recovered/Resolved]
  - Influenza [Recovered/Resolved]
  - C-reactive protein increased [Recovering/Resolving]
  - Cough [Recovering/Resolving]
  - Respiratory tract infection [Not Recovered/Not Resolved]

NARRATIVE: CASE EVENT DATE: 20210127
